FAERS Safety Report 13413830 (Version 4)
Quarter: 2022Q1

REPORT INFORMATION
  Report Type: Spontaneous
  Country: US (occurrence: US)
  Receive Date: 20170406
  Receipt Date: 20220225
  Transmission Date: 20220423
  Serious: No
  Sender: FDA-Public Use
  Company Number: US-JNJFOC-20170315917

PATIENT
  Age: 16 Year
  Sex: Male

DRUGS (6)
  1. RISPERDAL [Suspect]
     Active Substance: RISPERIDONE
     Indication: Oppositional defiant disorder
     Dosage: 1MG TABLETS AT 8PM AND 0.25 MG TABLETS AT 7 AM AND 4 PM
     Route: 048
     Dates: start: 20050321
  2. RISPERDAL [Suspect]
     Active Substance: RISPERIDONE
     Indication: Intellectual disability
     Dosage: VARYING DOSES OF 0.25MG, 0.5MG, 1MG, 1.5MG AND 3MG
     Route: 048
     Dates: start: 200804
  3. RISPERDAL [Suspect]
     Active Substance: RISPERIDONE
     Indication: Affective disorder
     Route: 048
     Dates: start: 20090423, end: 20090423
  4. RISPERDAL [Suspect]
     Active Substance: RISPERIDONE
     Indication: Disturbance in social behaviour
     Route: 048
     Dates: start: 20090424
  5. RISPERDAL [Suspect]
     Active Substance: RISPERIDONE
     Indication: Attention deficit hyperactivity disorder
     Dosage: VARYING DOSES OF 0.25MG, 0.5MG, 1MG, 1.5MG AND 3MG
     Route: 048
     Dates: end: 20091231
  6. RISPERDAL [Suspect]
     Active Substance: RISPERIDONE
     Dosage: VARYING DOSES OF 0.25MG, 0.5MG
     Route: 048
     Dates: start: 20100101, end: 20100217

REACTIONS (4)
  - Gynaecomastia [Unknown]
  - Emotional distress [Unknown]
  - Treatment noncompliance [Unknown]
  - Sedation [Unknown]

NARRATIVE: CASE EVENT DATE: 20080721
